FAERS Safety Report 5787722-5 (Version None)
Quarter: 2008Q2

REPORT INFORMATION
  Report Type: 
  Country: None (occurrence: None)
  Receive Date: 20080624
  Receipt Date: 20080624
  Transmission Date: 20081010
  Serious: Yes (Hospitalization)
  Sender: FDA-Public Use
  Company Number: None

PATIENT
  Age: 68 Year
  Sex: Male
  Weight: 102 kg

DRUGS (3)
  1. DOXORUBICIN HCL [Suspect]
     Indication: MULTIPLE MYELOMA
     Dosage: 34.5 MG  DAYS 1 + 8 Q 21  IV
     Route: 042
  2. BORTEZOMIB [Suspect]
     Dosage: 2.99 MCG  DAYS 1, 4, 8, +  IV
     Route: 042
  3. DEXAMETHASOME [Concomitant]

REACTIONS (5)
  - BACTERIAL INFECTION [None]
  - BLOOD CULTURE POSITIVE [None]
  - BLOOD PRESSURE SYSTOLIC DECREASED [None]
  - DIARRHOEA [None]
  - DIZZINESS [None]
